FAERS Safety Report 7779907-3 (Version None)
Quarter: 2011Q3

REPORT INFORMATION
  Report Type: 
  Country: None (occurrence: None)
  Receive Date: 20110927
  Receipt Date: 20110922
  Transmission Date: 20111222
  Serious: Yes (Congenital Anomaly)
  Sender: FDA-Public Use
  Company Number: US-PFIZER INC-2011159770

PATIENT
  Sex: Male
  Weight: 1.4 kg

DRUGS (23)
  1. NEURONTIN [Concomitant]
     Dosage: 300 MG, UNK
     Route: 064
     Dates: start: 20090709
  2. HYDROXYZINE [Concomitant]
     Dosage: UNK
     Route: 064
     Dates: start: 20090709
  3. KEFLEX [Concomitant]
     Dosage: 500 MG, UNK
     Route: 064
     Dates: start: 20090806
  4. DILAUDID [Concomitant]
     Dosage: 2 MG/1ML
     Route: 064
     Dates: start: 20090806
  5. NITROFURANTOIN [Concomitant]
     Dosage: 100 MG, UNK
     Route: 064
     Dates: start: 20090910
  6. ZOLOFT [Suspect]
     Dosage: UNK
     Route: 064
     Dates: start: 20090806
  7. CYMBALTA [Concomitant]
     Dosage: 60 MG, UNK
     Route: 064
     Dates: start: 20090101
  8. OXYMORPHONE [Concomitant]
     Dosage: 40 MG, UNK
     Route: 064
     Dates: start: 20090630
  9. OXYMORPHONE [Concomitant]
     Dosage: 40 MG, 3X/DAY
     Route: 064
     Dates: start: 20090709
  10. PREDNISONE [Concomitant]
     Dosage: UNK
     Route: 064
     Dates: start: 20090709
  11. CEPHALEXIN [Concomitant]
     Dosage: 500 MG, UNK
     Route: 064
     Dates: start: 20090804
  12. ZOLOFT [Suspect]
     Dosage: 50 MG, 1X/DAY
     Route: 064
     Dates: start: 20090120
  13. NORCO [Concomitant]
     Dosage: 10/325MG
     Route: 064
     Dates: start: 20090101
  14. CEPHALEXIN [Concomitant]
     Dosage: 250 MG, UNK
     Route: 064
     Dates: start: 20090930
  15. HYDROXYZINE [Concomitant]
     Dosage: 25 MG, UNK
     Route: 064
     Dates: start: 20090630
  16. CETIRIZINE [Concomitant]
     Dosage: 10 MG, UNK
     Route: 064
     Dates: start: 20090101
  17. VICODIN [Concomitant]
     Dosage: 5/500MG
     Route: 064
     Dates: start: 20090806
  18. NITROFURANTOIN [Concomitant]
     Dosage: 50 MG, UNK
     Route: 064
     Dates: start: 20090910
  19. ZOLOFT [Suspect]
     Dosage: 100 MG, UNK
     Route: 064
     Dates: start: 20090701
  20. PREDNISONE [Concomitant]
     Dosage: 20 MG, UNK
     Route: 064
     Dates: start: 20090519
  21. OXYMORPHONE [Concomitant]
     Dosage: 10 MG, UNK
     Route: 064
     Dates: start: 20090630
  22. OXYMORPHONE [Concomitant]
     Dosage: 30 MG, UNK
     Route: 064
     Dates: start: 20090620
  23. PROMETHAZINE [Concomitant]
     Dosage: 25MG/ML
     Route: 064
     Dates: start: 20090806

REACTIONS (2)
  - MATERNAL EXPOSURE DURING PREGNANCY [None]
  - PREMATURE BABY [None]
